FAERS Safety Report 4523486-0 (Version None)
Quarter: 2004Q4

REPORT INFORMATION
  Report Type: 
  Country: None (occurrence: None)
  Receive Date: 20041210
  Receipt Date: 20041201
  Transmission Date: 20050328
  Serious: Yes (Disabling)
  Sender: FDA-Public Use
  Company Number: US-MERCK-0412USA00239

PATIENT
  Age: 45 Year
  Sex: Female

DRUGS (5)
  1. VIOXX [Suspect]
     Indication: INFLAMMATION
     Route: 048
     Dates: start: 20020201, end: 20040701
  2. HYDROCODONE BITARTRATE [Concomitant]
     Route: 065
  3. OXYCONTIN [Concomitant]
     Route: 065
  4. DIAZEPAM [Concomitant]
     Route: 065
  5. CYCLOBENZAPRINE HYDROCHLORIDE [Concomitant]
     Route: 065

REACTIONS (4)
  - BONE PAIN [None]
  - CHEST PAIN [None]
  - HEADACHE [None]
  - OEDEMA PERIPHERAL [None]
